FAERS Safety Report 8190185 (Version 3)
Quarter: 2012Q4

REPORT INFORMATION
  Report Type: Report from Study
  Country: BR (occurrence: BR)
  Receive Date: 20111019
  Receipt Date: 20121212
  Transmission Date: 20130627
  Serious: Yes (Other)
  Sender: FDA-Public Use
  Company Number: BR-ROCHE-792637

PATIENT
  Age: 62 None
  Sex: Female
  Weight: 76 kg

DRUGS (14)
  1. RITUXIMAB [Suspect]
     Indication: RHEUMATOID ARTHRITIS
     Route: 065
     Dates: start: 20091201, end: 200912
  2. RITUXIMAB [Suspect]
     Route: 065
     Dates: start: 20110927, end: 20111010
  3. RITUXIMAB [Suspect]
     Route: 065
     Dates: start: 201206, end: 20120724
  4. NORIPURUM FOLICO [Concomitant]
  5. PANTOPRAZOLE [Concomitant]
     Route: 065
  6. DIOVAN [Concomitant]
     Route: 065
  7. NIFEDIPINE [Concomitant]
     Route: 065
  8. CALCORT [Concomitant]
     Route: 065
  9. DAONIL [Concomitant]
  10. TYLENOL [Concomitant]
     Indication: PREMEDICATION
  11. FENERGAN [Concomitant]
     Indication: PREMEDICATION
  12. CALCORT [Concomitant]
     Route: 065
  13. PURAN T4 [Concomitant]
     Route: 065
  14. SIMVASTATIN [Concomitant]
     Route: 065

REACTIONS (11)
  - Pneumonia [Recovered/Resolved]
  - Lower limb fracture [Unknown]
  - Fall [Unknown]
  - Anaemia [Recovered/Resolved]
  - Dysuria [Recovered/Resolved]
  - Thyroid neoplasm [Unknown]
  - Rash [Unknown]
  - Rash [Unknown]
  - Hypotension [Recovered/Resolved]
  - Hypertension [Recovered/Resolved]
  - Nephritis [Unknown]
